FAERS Safety Report 6730523-1 (Version None)
Quarter: 2010Q2

REPORT INFORMATION
  Report Type: 
  Country: None (occurrence: None)
  Receive Date: 20100514
  Receipt Date: 20100506
  Transmission Date: 20101027
  Serious: Yes (Death, Hospitalization, Other)
  Sender: FDA-Public Use
  Company Number: 2007-00388

PATIENT
  Age: 63 Year
  Sex: Male
  Weight: 58 kg

DRUGS (19)
  1. VELCADE [Suspect]
     Indication: MULTIPLE MYELOMA
     Dosage: SEE IMAGE
     Dates: start: 20061211, end: 20070202
  2. VELCADE [Suspect]
     Indication: MULTIPLE MYELOMA
     Dosage: SEE IMAGE
     Dates: start: 20070219, end: 20071022
  3. DECADRON [Suspect]
     Indication: MULTIPLE MYELOMA
     Dosage: SEE IMAGE
     Route: 048
     Dates: start: 20061219, end: 20070112
  4. DECADRON [Suspect]
     Indication: MULTIPLE MYELOMA
     Dosage: SEE IMAGE
     Route: 048
     Dates: start: 20070126, end: 20071023
  5. AMLODIPINE BESYLATE [Concomitant]
  6. ZOVIRAX [Concomitant]
  7. ALLOPURINOL [Concomitant]
  8. OMEPRAZOLE [Concomitant]
  9. MAGNESIUM OXIDE (MAGNESIUM OXIDE) [Concomitant]
  10. LAXOBERON (SODIUM PICOSULFATE) [Concomitant]
  11. KALIMATE (CALCIUM POLYSTYRENE SULFONATE) [Concomitant]
  12. PURSENNID [Concomitant]
  13. SOLDEM 1 (GLUCOSE, SODIUM LACTATE, SODIUM CHLORIDE) [Concomitant]
  14. RED BLOOD CELLS, CONSENTRATE (RED BLOOD CELLS, CONCENTRATED) [Concomitant]
  15. PLATELETES, HUMAN BLOOD (PLATELETS, HUMAN BLOOD) [Concomitant]
  16. CHLOR-TRIMETON [Concomitant]
  17. SOLU-CORTEF [Concomitant]
  18. LASIX [Concomitant]
  19. BAKTAR (SULFAMETHOXZOLE, TRIMETHOPRIM) [Concomitant]

REACTIONS (40)
  - ABDOMINAL DISTENSION [None]
  - ALANINE AMINOTRANSFERASE INCREASED [None]
  - ASPARTATE AMINOTRANSFERASE INCREASED [None]
  - BLOOD AMYLASE DECREASED [None]
  - BLOOD CREATININE INCREASED [None]
  - BLOOD LACTATE DEHYDROGENASE DECREASED [None]
  - BLOOD SODIUM DECREASED [None]
  - BLOOD UREA INCREASED [None]
  - C-REACTIVE PROTEIN INCREASED [None]
  - DECREASED APPETITE [None]
  - DISEASE PROGRESSION [None]
  - DIZZINESS [None]
  - EYE DISCHARGE [None]
  - EYELID OEDEMA [None]
  - GINGIVAL SWELLING [None]
  - HAEMOGLOBIN DECREASED [None]
  - HEADACHE [None]
  - HICCUPS [None]
  - HYPERAEMIA [None]
  - HYPERURICAEMIA [None]
  - HYPOCALCAEMIA [None]
  - HYPOGEUSIA [None]
  - HYPOKALAEMIA [None]
  - ILEUS PARALYTIC [None]
  - LYMPHOCYTE COUNT DECREASED [None]
  - MALAISE [None]
  - MOUTH HAEMORRHAGE [None]
  - NEOPLASM [None]
  - NERVE INJURY [None]
  - NEUTROPHIL COUNT DECREASED [None]
  - OROPHARYNGEAL PAIN [None]
  - PAIN IN EXTREMITY [None]
  - PALPITATIONS [None]
  - PLEURAL EFFUSION [None]
  - PNEUMONIA [None]
  - RASH [None]
  - THROMBOCYTOPENIA [None]
  - UPPER RESPIRATORY TRACT INFLAMMATION [None]
  - WEIGHT INCREASED [None]
  - WHITE BLOOD CELL COUNT DECREASED [None]
